FAERS Safety Report 13560178 (Version 1)
Quarter: 2017Q2

REPORT INFORMATION
  Report Type: Spontaneous
  Country: US (occurrence: US)
  Receive Date: 20170518
  Receipt Date: 20170518
  Transmission Date: 20170830
  Serious: No
  Sender: FDA-Public Use
  Company Number: US-PFIZER INC-2017212926

PATIENT
  Sex: Female

DRUGS (1)
  1. XELJANZ [Suspect]
     Active Substance: TOFACITINIB CITRATE
     Dosage: 5 MG, 2X/DAY

REACTIONS (11)
  - Musculoskeletal stiffness [Unknown]
  - Joint swelling [Unknown]
  - Arthralgia [Unknown]
  - Joint stiffness [Unknown]
  - Joint range of motion decreased [Unknown]
  - Arthropathy [Unknown]
  - Foot deformity [Unknown]
  - Musculoskeletal discomfort [Unknown]
  - Joint effusion [Unknown]
  - Musculoskeletal pain [Unknown]
  - Wheezing [Unknown]

NARRATIVE: CASE EVENT DATE: 20170512
